FAERS Safety Report 15810689 (Version 1)
Quarter: 2019Q1

REPORT INFORMATION
  Report Type: Spontaneous
  Country: US (occurrence: US)
  Receive Date: 20190111
  Receipt Date: 20190111
  Transmission Date: 20190417
  Serious: No
  Sender: FDA-Public Use
  Company Number: US-ROCHE-2105210

PATIENT
  Sex: Female

DRUGS (11)
  1. ACTEMRA [Concomitant]
     Active Substance: TOCILIZUMAB
     Route: 065
  2. RITUXAN [Suspect]
     Active Substance: RITUXIMAB
     Indication: PRODUCT USED FOR UNKNOWN INDICATION
     Route: 065
  3. METHOTREXATE. [Suspect]
     Active Substance: METHOTREXATE
     Indication: LIVER FUNCTION TEST INCREASED
     Route: 065
  4. ORENCIA [Concomitant]
     Active Substance: ABATACEPT
  5. HUMIRA [Concomitant]
     Active Substance: ADALIMUMAB
  6. CIMZIA [Concomitant]
     Active Substance: CERTOLIZUMAB PEGOL
  7. RITUXAN [Suspect]
     Active Substance: RITUXIMAB
     Indication: PRODUCT USED FOR UNKNOWN INDICATION
  8. SIMPONI [Concomitant]
     Active Substance: GOLIMUMAB
  9. REMICADE [Concomitant]
     Active Substance: INFLIXIMAB
  10. ENBREL [Suspect]
     Active Substance: ETANERCEPT
     Indication: PRODUCT USED FOR UNKNOWN INDICATION
     Route: 065
  11. RITUXAN [Suspect]
     Active Substance: RITUXIMAB
     Indication: PRODUCT USED FOR UNKNOWN INDICATION

REACTIONS (2)
  - Drug ineffective [Unknown]
  - No adverse event [Unknown]
